FAERS Safety Report 13763736 (Version 1)
Quarter: 2017Q3

REPORT INFORMATION
  Report Type: Report from Study
  Country: BR (occurrence: BR)
  Receive Date: 20170718
  Receipt Date: 20170718
  Transmission Date: 20171127
  Serious: Yes (Hospitalization, Other)
  Sender: FDA-Public Use
  Company Number: BR-JNJFOC-20170711319

PATIENT
  Age: 83 Year
  Sex: Male

DRUGS (1)
  1. REMICADE [Suspect]
     Active Substance: INFLIXIMAB
     Indication: PSORIATIC ARTHROPATHY
     Route: 042
     Dates: start: 2009, end: 201702

REACTIONS (3)
  - Prostatectomy [Recovering/Resolving]
  - Psoriasis [Unknown]
  - Bacterial infection [Recovering/Resolving]

NARRATIVE: CASE EVENT DATE: 2017
